FAERS Safety Report 5447304-1 (Version None)
Quarter: 2007Q3

REPORT INFORMATION
  Report Type: 
  Country: None (occurrence: None)
  Receive Date: 20070910
  Receipt Date: 20070827
  Transmission Date: 20080115
  Serious: Yes (Hospitalization, Other)
  Sender: FDA-Public Use
  Company Number: US-BAUSCH-2007BL001986

PATIENT
  Age: 72 Year
  Sex: Female

DRUGS (7)
  1. SULFACETAMIDE SODIUM [Suspect]
     Indication: CONJUNCTIVITIS ALLERGIC
     Route: 047
     Dates: start: 20070604, end: 20070606
  2. ERYTHROMYCIN [Concomitant]
     Route: 047
  3. NATTOKINASE [Concomitant]
  4. RED YEAST RICE EXTRACT [Concomitant]
  5. VITAMIN E [Concomitant]
  6. ASCORBIC ACID [Concomitant]
  7. MOTRIN [Concomitant]

REACTIONS (15)
  - APPLICATION SITE IRRITATION [None]
  - APPLICATION SITE PAIN [None]
  - BLISTER [None]
  - BLOOD PRESSURE INCREASED [None]
  - CELLULITIS ORBITAL [None]
  - CONJUNCTIVAL OEDEMA [None]
  - CONJUNCTIVITIS INFECTIVE [None]
  - FACIAL PAIN [None]
  - IMPAIRED DRIVING ABILITY [None]
  - LACRIMAL DISORDER [None]
  - LACRIMAL GLAND ENLARGEMENT [None]
  - PAIN [None]
  - PHARMACEUTICAL PRODUCT COMPLAINT [None]
  - VISION BLURRED [None]
  - VISUAL DISTURBANCE [None]
